FAERS Safety Report 6602007-2 (Version None)
Quarter: 2010Q1

REPORT INFORMATION
  Report Type: 
  Country: None (occurrence: None)
  Receive Date: 20100225
  Receipt Date: 20100216
  Transmission Date: 20100710
  Serious: Yes (Other)
  Sender: FDA-Public Use
  Company Number: US-PFIZER INC-2010021622

PATIENT
  Sex: Female
  Weight: 76 kg

DRUGS (10)
  1. LIPITOR [Suspect]
     Indication: BLOOD CHOLESTEROL INCREASED
     Dosage: 10 MG, 1X/DAY IN THE EVENING
     Route: 048
     Dates: start: 20100210, end: 20100210
  2. LIPITOR [Suspect]
     Dosage: 10 MG, 1X/DAY
     Route: 048
     Dates: start: 20100215, end: 20100215
  3. CELEBREX [Concomitant]
     Dosage: 200 MG, UNK
  4. FOSAMAX [Concomitant]
     Dosage: UNK
  5. MIRTAZAPINE [Concomitant]
     Dosage: UNK
  6. LEVOTHYROXINE [Concomitant]
     Dosage: 0.1 MG, UNK
  7. BENAZEPRIL [Concomitant]
     Dosage: 20 MG, UNK
  8. CELEXA [Concomitant]
     Dosage: UNK
  9. ACETYLSALICYLIC ACID [Concomitant]
     Dosage: UNK
  10. CLINDAMYCIN [Concomitant]
     Indication: DENTAL CARE
     Dosage: FREQUENCY: AS NEEDED

REACTIONS (6)
  - ARTHRALGIA [None]
  - BACK PAIN [None]
  - IMMOBILE [None]
  - OSTEOARTHRITIS [None]
  - PAIN [None]
  - SCIATICA [None]
